FAERS Safety Report 12775444 (Version 2)
Quarter: 2017Q1

REPORT INFORMATION
  Report Type: Spontaneous
  Country: FR (occurrence: FR)
  Receive Date: 20160923
  Receipt Date: 20170120
  Transmission Date: 20170428
  Serious: Yes (Hospitalization)
  Sender: FDA-Public Use
  Company Number: FR-JNJFOC-20160922712

PATIENT
  Age: 50 Year
  Sex: Female

DRUGS (20)
  1. REMICADE [Suspect]
     Active Substance: INFLIXIMAB
     Indication: SAPHO SYNDROME
     Dosage: 56TH INFUSION
     Route: 042
     Dates: start: 20160722
  2. REMICADE [Suspect]
     Active Substance: INFLIXIMAB
     Indication: SAPHO SYNDROME
     Route: 042
     Dates: start: 2005
  3. KARDEGIC [Concomitant]
     Active Substance: ASPIRIN LYSINE
     Route: 065
  4. OROCAL D3 [Concomitant]
     Active Substance: CALCIUM CARBONATE\CHOLECALCIFEROL
     Route: 065
  5. BACLOFENE [Concomitant]
     Active Substance: BACLOFEN
     Route: 065
  6. ATORVASTATIN [Concomitant]
     Active Substance: ATORVASTATIN
     Route: 065
  7. DIFFU K [Concomitant]
     Active Substance: POTASSIUM CHLORIDE
     Route: 065
  8. SPASFON [Concomitant]
     Active Substance: PHLOROGLUCINOL
     Route: 065
  9. REMICADE [Suspect]
     Active Substance: INFLIXIMAB
     Indication: SAPHO SYNDROME
     Dosage: 55TH INFUSION
     Route: 042
     Dates: start: 20160525, end: 20160628
  10. MIRTAZAPINE. [Concomitant]
     Active Substance: MIRTAZAPINE
     Route: 065
  11. ESCITALOPRAM [Concomitant]
     Active Substance: ESCITALOPRAM OXALATE
     Route: 065
  12. PRAZEPAM [Concomitant]
     Active Substance: PRAZEPAM
     Route: 065
  13. SPECIAFOLDINE [Concomitant]
     Active Substance: FOLIC ACID
     Route: 065
  14. NOVATREX NOS [Suspect]
     Active Substance: AZITHROMYCIN OR METHOTREXATE SODIUM
     Indication: SAPHO SYNDROME
     Route: 048
     Dates: start: 2005
  15. PANTOPRAZOLE [Concomitant]
     Active Substance: PANTOPRAZOLE SODIUM
     Route: 065
  16. PERINDOPRIL [Concomitant]
     Active Substance: PERINDOPRIL
     Route: 065
  17. CORTANCYL [Suspect]
     Active Substance: PREDNISONE
     Indication: SAPHO SYNDROME
     Route: 048
     Dates: start: 2005
  18. OXYCODONE [Concomitant]
     Active Substance: OXYCODONE
     Route: 065
  19. AMLOR [Concomitant]
     Active Substance: AMLODIPINE BESYLATE
     Route: 065
  20. RISEDRONATE [Concomitant]
     Active Substance: RISEDRONATE SODIUM
     Route: 065

REACTIONS (3)
  - Chlamydia test positive [Unknown]
  - Lung disorder [Recovered/Resolved]
  - Asthma [Unknown]

NARRATIVE: CASE EVENT DATE: 20160616
